FAERS Safety Report 13306433 (Version 1)
Quarter: 2017Q1

REPORT INFORMATION
  Report Type: Spontaneous
  Country: US (occurrence: US)
  Receive Date: 20170308
  Receipt Date: 20170308
  Transmission Date: 20170428
  Serious: Yes (Other)
  Sender: FDA-Public Use
  Company Number: US-SUNOVION-2016SUN003335

PATIENT

DRUGS (3)
  1. LATUDA [Suspect]
     Active Substance: LURASIDONE HYDROCHLORIDE
     Dosage: UNK
     Route: 048
  2. LITHIUM. [Concomitant]
     Active Substance: LITHIUM
  3. INVEGA [Concomitant]
     Active Substance: PALIPERIDONE

REACTIONS (3)
  - Change of bowel habit [Unknown]
  - Hallucination, visual [Unknown]
  - Dehydration [Unknown]
